FAERS Safety Report 7560227-7 (Version None)
Quarter: 2011Q2

REPORT INFORMATION
  Report Type: 
  Country: None (occurrence: None)
  Receive Date: 20110617
  Receipt Date: 20110617
  Transmission Date: 20111010
  Serious: Yes (Other)
  Sender: FDA-Public Use
  Company Number: None

PATIENT
  Sex: Female
  Weight: 86.1834 kg

DRUGS (2)
  1. VERAMYST [Suspect]
     Indication: HYPERSENSITIVITY
     Dosage: 1 PUFF IN EACH NOSTRIL ONCE DAILY NASAL
     Route: 045
     Dates: start: 20110610, end: 20110614
  2. VERAMYST [Suspect]
     Indication: RHINORRHOEA
     Dosage: 1 PUFF IN EACH NOSTRIL ONCE DAILY NASAL
     Route: 045
     Dates: start: 20110130, end: 20110513

REACTIONS (2)
  - DYSPHONIA [None]
  - GASTROOESOPHAGEAL REFLUX DISEASE [None]
